FAERS Safety Report 12047813 (Version 1)
Quarter: 2016Q1

REPORT INFORMATION
  Report Type: Spontaneous
  Country: AU (occurrence: AU)
  Receive Date: 20160208
  Receipt Date: 20160208
  Transmission Date: 20160526
  Serious: Yes (Hospitalization)
  Sender: FDA-Public Use
  Company Number: AU-SA-2016SA016257

PATIENT
  Sex: Male

DRUGS (1)
  1. AVAPRO HCT [Suspect]
     Active Substance: HYDROCHLOROTHIAZIDE\IRBESARTAN
     Indication: BLOOD PRESSURE MEASUREMENT
     Dosage: 150/12.5 MG
     Route: 065

REACTIONS (4)
  - Unevaluable event [Unknown]
  - Vision blurred [Unknown]
  - Muscular weakness [Unknown]
  - Paraesthesia [Unknown]
